FAERS Safety Report 15411515 (Version 1)
Quarter: 2018Q3

REPORT INFORMATION
  Report Type: Report from Study
  Country: None (occurrence: CA)
  Receive Date: 20180921
  Receipt Date: 20180921
  Transmission Date: 20181010
  Serious: Yes (Other)
  Sender: FDA-Public Use
  Company Number: CA-ABBVIE-18K-028-2478883-00

PATIENT
  Age: 72 Year
  Sex: Male
  Weight: 118.04 kg

DRUGS (2)
  1. VENCLEXTA [Suspect]
     Active Substance: VENETOCLAX
     Indication: CHRONIC LYMPHOCYTIC LEUKAEMIA
     Route: 048
  2. VENCLEXTA [Suspect]
     Active Substance: VENETOCLAX
     Route: 048
     Dates: start: 20180821, end: 2018

REACTIONS (2)
  - Platelet count decreased [Unknown]
  - Transfusion [Recovering/Resolving]

NARRATIVE: CASE EVENT DATE: 2018
